FAERS Safety Report 8790022 (Version 4)
Quarter: 2013Q3

REPORT INFORMATION
  Report Type: Report from Study
  Country: JP (occurrence: JP)
  Receive Date: 20120917
  Receipt Date: 20130920
  Transmission Date: 20140515
  Serious: Yes (Hospitalization)
  Sender: FDA-Public Use
  Company Number: JP-VERTEX PHARMACEUTICAL INC.-AE-2012-012031

PATIENT
  Age: 50 Year
  Sex: Female

DRUGS (19)
  1. VX-950 (TELAPREVIR) [Suspect]
     Indication: CHRONIC HEPATITIS C
     Dosage: 2250 MG, QD
     Route: 048
     Dates: start: 20120705, end: 20120711
  2. VX-950 (TELAPREVIR) [Suspect]
     Dosage: 1500 MG, QD
     Route: 048
     Dates: start: 20120712, end: 20120808
  3. REBETOL [Suspect]
     Indication: CHRONIC HEPATITIS C
     Dosage: 600 MG, QD
     Route: 048
     Dates: start: 20120705, end: 20120808
  4. REBETOL [Suspect]
     Dosage: 400 MG, QD
     Route: 048
     Dates: start: 20120809, end: 20120812
  5. REBETOL [Suspect]
     Dosage: 600 MG,QD
     Route: 048
     Dates: start: 20120901
  6. PEGINTRON [Suspect]
     Indication: CHRONIC HEPATITIS C
     Dosage: 1.5 ?G/KG, QW
     Route: 058
     Dates: start: 20120705, end: 20120711
  7. PEGINTRON [Suspect]
     Dosage: 0.7 ?G/KG,QW
     Route: 058
     Dates: start: 20120712, end: 20120815
  8. PEGINTRON [Suspect]
     Dosage: 1.5 ?G/KG, QW
     Route: 058
     Dates: start: 20120913
  9. GASMOTIN [Concomitant]
     Dosage: UNK
     Route: 048
     Dates: start: 20120811, end: 20120818
  10. TAKEPRON [Concomitant]
     Dosage: UNK
     Route: 048
     Dates: end: 20120816
  11. THYRADIN-S [Concomitant]
     Dosage: 50 MG, QD
     Route: 048
     Dates: end: 20120816
  12. PREDONINE [Concomitant]
     Dosage: 30 MG, QD
     Route: 048
     Dates: start: 20120823, end: 20120828
  13. PREDONINE [Concomitant]
     Dosage: 25 MG, QD
     Route: 048
     Dates: start: 20120829, end: 20120906
  14. PREDONINE [Concomitant]
     Dosage: 20 MG, QD
     Route: 048
     Dates: start: 20120907, end: 20120910
  15. PREDONINE [Concomitant]
     Dosage: 15 MG, QD
     Route: 048
     Dates: start: 20120911, end: 20120914
  16. PREDONINE [Concomitant]
     Dosage: 10 MG, QD
     Route: 048
     Dates: start: 20120915, end: 20120918
  17. PREDONINE [Concomitant]
     Dosage: 7.5 MG, QD
     Route: 048
     Dates: start: 20120919, end: 20120924
  18. PREDONINE [Concomitant]
     Dosage: 5 MG, QD
     Route: 048
     Dates: start: 20120925
  19. FERON [Concomitant]
     Dosage: 6000000 UT, QD
     Route: 042
     Dates: start: 20120830, end: 20120912

REACTIONS (2)
  - Erythema multiforme [Recovered/Resolved]
  - Drug eruption [Not Recovered/Not Resolved]
